FAERS Safety Report 11308611 (Version 1)
Quarter: 2015Q3

REPORT INFORMATION
  Report Type: Report from Study
  Country: BR (occurrence: BR)
  Receive Date: 20150724
  Receipt Date: 20150724
  Transmission Date: 20151125
  Serious: Yes (Death)
  Sender: FDA-Public Use
  Company Number: PHHY2015BR087994

PATIENT
  Age: 77 Year
  Sex: Male
  Weight: 82 kg

DRUGS (1)
  1. EXELON PATCH [Suspect]
     Active Substance: RIVASTIGMINE
     Indication: PRODUCT USED FOR UNKNOWN INDICATION
     Dosage: 2 PATCHES, QD
     Route: 062
     Dates: start: 201502

REACTIONS (2)
  - Memory impairment [Fatal]
  - Cardiac arrest [Fatal]

NARRATIVE: CASE EVENT DATE: 201502
